FAERS Safety Report 7940801-6 (Version None)
Quarter: 2011Q4

REPORT INFORMATION
  Report Type: 
  Country: None (occurrence: None)
  Receive Date: 20111128
  Receipt Date: 20111117
  Transmission Date: 20120403
  Serious: Yes (Death, Life-Threatening, Hospitalization)
  Sender: FDA-Public Use
  Company Number: DE-PFIZER INC-199967163PHANOV

PATIENT
  Age: 61 Year
  Sex: Male
  Weight: 84 kg

DRUGS (39)
  1. FUROSEMIDE [Suspect]
  2. ALFENTANIL [Suspect]
  3. DIPIDOLOR [Suspect]
  4. DIGITOXIN TAB [Suspect]
  5. TPN ELECTROLYTES IN PLASTIC CONTAINER [Concomitant]
     Dosage: UNK
     Route: 042
     Dates: start: 19960502, end: 19960503
  6. POTASSIUM CHLORIDE [Concomitant]
     Dosage: UNK
     Route: 042
     Dates: start: 19960429, end: 19960503
  7. LOSFERRON [Concomitant]
     Dosage: UNK
     Route: 048
     Dates: start: 19960419, end: 19960422
  8. STEROFUNDIN [Concomitant]
     Dosage: UNK
     Route: 042
     Dates: start: 19960503, end: 19960507
  9. TRACRIUM [Suspect]
  10. PROPULSIN [Suspect]
  11. SUFENTA PRESERVATIVE FREE [Suspect]
  12. SODIUM CHLORIDE [Concomitant]
     Dosage: UNK
     Route: 042
     Dates: start: 19960505, end: 19960505
  13. MULTIVITAMIN ADDITIVE [Concomitant]
     Dosage: UNK
     Route: 042
     Dates: start: 19960507, end: 19960507
  14. ALDACTONE [Suspect]
  15. PARACTOL [Suspect]
  16. HETASTARCH IN SODIUM CHLORIDE [Suspect]
  17. LIPOVENOES [Concomitant]
     Dosage: UNK
     Route: 042
     Dates: start: 19960505, end: 19960507
  18. MAGNESIUM SULFATE [Concomitant]
     Dosage: UNK
     Route: 048
     Dates: start: 19960418, end: 19960422
  19. CAPTOPRIL [Suspect]
  20. ACETYLCYSTEINE [Suspect]
  21. CLONIDINE [Suspect]
  22. PROSTIGMIN BROMIDE [Suspect]
  23. BEPANTHEN [Suspect]
  24. TAKUS [Suspect]
     Indication: PROPHYLAXIS
     Dosage: UNK
     Route: 042
     Dates: start: 19960430, end: 19960507
  25. CARBOCISTEINE [Suspect]
  26. MEROPENEM [Suspect]
  27. PROPOFOL [Suspect]
  28. MULTIBIONTA [Concomitant]
     Dosage: UNK
     Route: 042
     Dates: start: 19960505, end: 19960507
  29. TEMAZEPAM [Suspect]
     Dosage: UNK
     Route: 048
     Dates: start: 19960424, end: 19960424
  30. NIFEDIPINE [Suspect]
  31. FAMOTIDINE [Suspect]
  32. DOBUTAMINE HCL [Suspect]
  33. NITRAZEPAM [Suspect]
  34. PANTHENOL [Suspect]
  35. SIMETICONE [Suspect]
  36. UBRETID [Suspect]
  37. DOPAMINE HYDROCHLORIDE [Suspect]
  38. NUTRIFLEX ^BRAUN^ [Concomitant]
     Dosage: UNK
     Route: 042
     Dates: start: 19960503, end: 19960507
  39. RINGERS SOLUTION [Concomitant]
     Dosage: UNK
     Route: 042
     Dates: start: 19960501, end: 19960505

REACTIONS (1)
  - TOXIC EPIDERMAL NECROLYSIS [None]
